FAERS Safety Report 5280265-7 (Version None)
Quarter: 2007Q1

REPORT INFORMATION
  Report Type: 
  Country: None (occurrence: None)
  Receive Date: 20070329
  Receipt Date: 20070326
  Transmission Date: 20070707
  Serious: Yes (Other)
  Sender: FDA-Public Use
  Company Number: US-GLAXOSMITHKLINE-A0642605A

PATIENT
  Age: 32 Year
  Sex: Female
  Weight: 95.5 kg

DRUGS (8)
  1. LAMOTRIGINE [Suspect]
     Indication: MAJOR DEPRESSION
     Dosage: 25MG PER DAY
     Route: 048
     Dates: start: 20070223, end: 20070101
  2. AZITHROMYCIN [Suspect]
  3. SEROQUEL [Concomitant]
  4. REMERON [Concomitant]
  5. EFFEXOR XR [Concomitant]
  6. KLONOPIN [Concomitant]
  7. SEREVENT [Concomitant]
  8. ALBUTEROL [Concomitant]

REACTIONS (4)
  - ERYTHEMA [None]
  - PHARYNGOLARYNGEAL PAIN [None]
  - RASH [None]
  - RECTAL HAEMORRHAGE [None]
